FAERS Safety Report 7071050-4 (Version None)
Quarter: 2010Q4

REPORT INFORMATION
  Report Type: 
  Country: None (occurrence: None)
  Receive Date: 20101029
  Receipt Date: 20101021
  Transmission Date: 20110411
  Serious: No
  Sender: FDA-Public Use
  Company Number: US-PFIZER INC-2010137277

PATIENT
  Sex: Female
  Weight: 50.8 kg

DRUGS (1)
  1. OGEN [Suspect]
     Indication: HORMONE REPLACEMENT THERAPY
     Dosage: UNK
     Dates: start: 19860101

REACTIONS (2)
  - HOT FLUSH [None]
  - INCORRECT DOSE ADMINISTERED [None]
